FAERS Safety Report 6310770-3 (Version None)
Quarter: 2009Q3

REPORT INFORMATION
  Report Type: 
  Country: None (occurrence: None)
  Receive Date: 20090812
  Receipt Date: 20090802
  Transmission Date: 20100115
  Serious: Yes (Other)
  Sender: FDA-Public Use
  Company Number: CHPA2009US16479

PATIENT
  Sex: Male

DRUGS (6)
  1. NODOZ [Suspect]
     Dosage: 2 DF, ONCE/SINGLE, ORAL, 1 DF, ONCE/SINGLE, VIA FALSA
     Route: 048
     Dates: start: 20090801, end: 20090801
  2. METHYLENEDIOXYMETHAMPHETAMINE (METHYLENEDIOXYMETHAMPHETAMINE) [Suspect]
     Dosage: 2 DF, ORAL
     Route: 048
     Dates: start: 20090801
  3. XANAX [Concomitant]
  4. ATIVAN [Concomitant]
  5. OXYCONTIN [Concomitant]
  6. RITALIN [Concomitant]

REACTIONS (7)
  - DRUG ABUSE [None]
  - ENERGY INCREASED [None]
  - HEART RATE INCREASED [None]
  - INCORRECT ROUTE OF DRUG ADMINISTRATION [None]
  - MASTICATION DISORDER [None]
  - OVERDOSE [None]
  - WRONG TECHNIQUE IN DRUG USAGE PROCESS [None]
